FAERS Safety Report 7513444-6 (Version None)
Quarter: 2011Q2

REPORT INFORMATION
  Report Type: 
  Country: None (occurrence: None)
  Receive Date: 20110531
  Receipt Date: 20110520
  Transmission Date: 20111010
  Serious: Yes (Hospitalization)
  Sender: FDA-Public Use
  Company Number: US-AMGEN-USASP2011014344

PATIENT
  Sex: Male

DRUGS (3)
  1. VITAMIN A [Concomitant]
     Dosage: 50000 IU, UNK
  2. XGEVA [Suspect]
     Indication: NEOPLASM MALIGNANT
  3. CALCIUM CARBONATE [Concomitant]
     Dosage: 1200 MG, UNK

REACTIONS (2)
  - HYPOCALCAEMIA [None]
  - FEMUR FRACTURE [None]
